FAERS Safety Report 4978629-1 (Version None)
Quarter: 2006Q2

REPORT INFORMATION
  Report Type: 
  Country: None (occurrence: None)
  Receive Date: 20060420
  Receipt Date: 20050817
  Transmission Date: 20061013
  Serious: Yes (Other)
  Sender: FDA-Public Use
  Company Number: DE-MERCK-0508DEU00149M

PATIENT
  Age: 34 Year
  Sex: Female

DRUGS (1)
  1. MAXALT [Suspect]
     Indication: MIGRAINE
     Route: 048
     Dates: start: 20050609, end: 20050101

REACTIONS (6)
  - DRUG EXPOSURE DURING PREGNANCY [None]
  - HYPERTHYROIDISM [None]
  - INFECTION [None]
  - INTRA-UTERINE DEATH [None]
  - PREGNANCY [None]
  - TACHYCARDIA [None]
